FAERS Safety Report 4303649-X (Version None)
Quarter: 2004Q1

REPORT INFORMATION
  Report Type: 
  Country: None (occurrence: None)
  Receive Date: 20040223
  Receipt Date: 20040213
  Transmission Date: 20041129
  Serious: Yes (Other)
  Sender: FDA-Public Use
  Company Number: 2004198994US

PATIENT
  Age: 71 Year
  Sex: Female

DRUGS (1)
  1. CAMPTOSAR [Suspect]
     Dates: start: 20020401, end: 20040201

REACTIONS (2)
  - RETINAL VEIN OCCLUSION [None]
  - RETINAL VEIN THROMBOSIS [None]
